FAERS Safety Report 6616091-3 (Version None)
Quarter: 2010Q1

REPORT INFORMATION
  Report Type: 
  Country: None (occurrence: None)
  Receive Date: 20100305
  Receipt Date: 20100222
  Transmission Date: 20100710
  Serious: Yes (Hospitalization, Other)
  Sender: FDA-Public Use
  Company Number: PHEH2005US10713

PATIENT
  Sex: Male

DRUGS (28)
  1. AREDIA [Suspect]
     Indication: MULTIPLE MYELOMA
     Dosage: 90 MG, QMO
     Dates: start: 19960101, end: 20011214
  2. ZOMETA [Suspect]
     Indication: MULTIPLE MYELOMA
     Dosage: 4 MG, QMO
     Dates: start: 20020208, end: 20050421
  3. MELPHALAN [Concomitant]
     Indication: MULTIPLE MYELOMA
  4. PREDNISONE [Concomitant]
     Indication: MULTIPLE MYELOMA
  5. THALIDOMIDE [Concomitant]
     Indication: MULTIPLE MYELOMA
     Dates: start: 20040201
  6. THALIDOMIDE [Concomitant]
     Dosage: 200 MG, QD
     Dates: start: 20040601
  7. DECADRON [Concomitant]
     Indication: MULTIPLE MYELOMA
     Dates: start: 20040201
  8. DECADRON [Concomitant]
     Dosage: 100 MG, QD
     Dates: start: 20040601
  9. DECADRON [Concomitant]
     Dosage: PULSE Q2WKS
     Dates: start: 20041001
  10. WARFARIN SODIUM [Concomitant]
     Indication: DEEP VEIN THROMBOSIS
  11. MEGACE [Concomitant]
     Indication: DECREASED APPETITE
  12. GERITOL /USA/ [Concomitant]
     Dates: end: 20040701
  13. NEXIUM [Concomitant]
     Dosage: 40 MG, UNK
     Dates: end: 20040701
  14. SENNA [Concomitant]
  15. PROTONIX [Concomitant]
  16. METOCLOPRAMIDE [Concomitant]
  17. IMMU-G [Concomitant]
  18. PROCRIT [Concomitant]
  19. CHEMOTHERAPEUTICS NOS [Concomitant]
  20. TYLENOL-500 [Concomitant]
     Dosage: 500 MG
     Route: 048
     Dates: end: 20040701
  21. ACETAMINOPHEN AND HYDROCODONE BITARTRATE [Concomitant]
     Dosage: 500 MG
     Route: 048
     Dates: end: 20040701
  22. PERCOCET [Concomitant]
     Dosage: 325 MG
     Route: 048
     Dates: start: 20040511
  23. PENICILLIN V [Concomitant]
     Dosage: 250  MG
     Route: 048
     Dates: start: 20031001, end: 20040601
  24. MORPHINE SULFATE [Concomitant]
     Dosage: UNK
     Dates: start: 20040401, end: 20040601
  25. ALKERAN [Concomitant]
  26. LEVAQUIN [Concomitant]
  27. ADVIL LIQUI-GELS [Concomitant]
  28. ROBITUSSIN ^ROBINS^ [Concomitant]

REACTIONS (61)
  - ABSCESS [None]
  - ACTINOMYCOSIS [None]
  - ALVEOLOPLASTY [None]
  - ANAEMIA [None]
  - ASTHENIA [None]
  - BACK PAIN [None]
  - BONE DISORDER [None]
  - BRONCHITIS [None]
  - CATARACT [None]
  - CHORIORETINAL DISORDER [None]
  - CHORIORETINOPATHY [None]
  - COLLAPSE OF LUNG [None]
  - CONSTIPATION [None]
  - DEBRIDEMENT [None]
  - DECREASED APPETITE [None]
  - DECUBITUS ULCER [None]
  - DEEP VEIN THROMBOSIS [None]
  - DENTAL CARIES [None]
  - DENTAL OPERATION [None]
  - DENTURE WEARER [None]
  - EARLY SATIETY [None]
  - ENDOTRACHEAL INTUBATION COMPLICATION [None]
  - HAEMOGLOBIN DECREASED [None]
  - HYPERBARIC OXYGEN THERAPY [None]
  - IMMUNODEFICIENCY [None]
  - INCISIONAL DRAINAGE [None]
  - INFLAMMATION [None]
  - JAW OPERATION [None]
  - MALIGNANT NEOPLASM PROGRESSION [None]
  - METASTASES TO BONE [None]
  - METASTASES TO SPINE [None]
  - MUSCULOSKELETAL CHEST PAIN [None]
  - OPEN REDUCTION OF FRACTURE [None]
  - ORAL INFECTION [None]
  - OSTEOMYELITIS [None]
  - OSTEONECROSIS [None]
  - PAIN IN JAW [None]
  - PAROTID GLAND ENLARGEMENT [None]
  - PAROTITIS [None]
  - PATHOLOGICAL FRACTURE [None]
  - PERSONALITY CHANGE [None]
  - PNEUMOTHORAX [None]
  - PRODUCTIVE COUGH [None]
  - PURULENCE [None]
  - PYREXIA [None]
  - RADIOTHERAPY [None]
  - RETINAL DISORDER [None]
  - SINUSITIS [None]
  - SOFT TISSUE INFLAMMATION [None]
  - SPINAL COMPRESSION FRACTURE [None]
  - SPINAL DISORDER [None]
  - STAPHYLOCOCCAL INFECTION [None]
  - SURGERY [None]
  - SWELLING [None]
  - TOOTH DEPOSIT [None]
  - TOOTH EXTRACTION [None]
  - TRISMUS [None]
  - UPPER RESPIRATORY TRACT INFECTION [None]
  - VERTEBROPLASTY [None]
  - VISUAL ACUITY REDUCED [None]
  - WEIGHT DECREASED [None]
